FAERS Safety Report 11670269 (Version 3)
Quarter: 2016Q1

REPORT INFORMATION
  Report Type: Spontaneous
  Country: US (occurrence: US)
  Receive Date: 20151028
  Receipt Date: 20160322
  Transmission Date: 20160525
  Serious: Yes (Hospitalization, Other)
  Sender: FDA-Public Use
  Company Number: US-HOSPIRA-3036362

PATIENT
  Age: 43 Year
  Sex: Female

DRUGS (13)
  1. ZOFRAN [Concomitant]
     Active Substance: ONDANSETRON HYDROCHLORIDE
     Indication: VOMITING
     Route: 048
     Dates: start: 20150916
  2. VELIPARIB [Suspect]
     Active Substance: VELIPARIB
     Indication: COLORECTAL CANCER METASTATIC
     Dosage: DAYS 2 THROUGH 5 OF EACH 21-DAY CYCLE
     Route: 048
     Dates: start: 20150914
  3. VIGRAN [Concomitant]
     Indication: VITAMIN SUPPLEMENTATION
     Route: 048
  4. 5-FLUOROURACIL                     /00098801/ [Suspect]
     Active Substance: FLUOROURACIL
     Indication: COLORECTAL CANCER METASTATIC
     Dosage: OVER 15 MINUTES; DAY 1 OF EACH 14-DAY CYCLE
     Route: 040
     Dates: start: 20150916
  5. 5-FLUOROURACIL                     /00098801/ [Suspect]
     Active Substance: FLUOROURACIL
     Indication: COLORECTAL CANCER METASTATIC
     Dosage: OVER 46 HOURS; DAY 1 OF EACH 14-DAY CYCLE
     Route: 042
     Dates: start: 20150916
  6. DECADRON [Concomitant]
     Active Substance: DEXAMETHASONE
     Indication: NAUSEA
     Dosage: DAILY FOR 3 DAYS FOLLOWING CHEMOTHERAPY
     Route: 048
     Dates: start: 20150916
  7. DECADRON [Concomitant]
     Active Substance: DEXAMETHASONE
     Indication: VOMITING
     Dosage: DAILY FOR 3 DAYS FOLLOWING CHEMOTHERAPY
     Route: 048
     Dates: start: 20150916
  8. IRINOTECAN HYDROCHLORIDE. [Suspect]
     Active Substance: IRINOTECAN HYDROCHLORIDE
     Indication: COLORECTAL CANCER METASTATIC
     Dosage: DAY 1 OF EACH 14-DAY CYCLE
     Route: 042
     Dates: start: 20150916
  9. LEUCOVORIN                         /00566701/ [Concomitant]
     Active Substance: LEUCOVORIN
     Indication: COLORECTAL CANCER METASTATIC
     Dosage: DAY 1 OF EACH 14-DAY CYCLE
     Route: 042
     Dates: start: 20150916
  10. BEVACIZUMAB [Suspect]
     Active Substance: BEVACIZUMAB
     Indication: COLORECTAL CANCER METASTATIC
     Dosage: DAY 1OF EACH 14-DAY CYCLE
     Route: 042
  11. ZOFRAN [Concomitant]
     Active Substance: ONDANSETRON HYDROCHLORIDE
     Indication: NAUSEA
     Route: 048
     Dates: start: 20150916
  12. MIRALAX [Concomitant]
     Active Substance: POLYETHYLENE GLYCOL 3350
     Indication: CONSTIPATION
     Route: 048
     Dates: start: 20150821
  13. DULCOLAX (BISACODYL) [Concomitant]
     Active Substance: BISACODYL
     Indication: CONSTIPATION
     Route: 054
     Dates: start: 20150514

REACTIONS (4)
  - Vomiting [Recovered/Resolved]
  - Dehydration [Unknown]
  - Nausea [Recovered/Resolved]
  - Anaemia [Unknown]

NARRATIVE: CASE EVENT DATE: 20150917
